FAERS Safety Report 25488128 (Version 1)
Quarter: 2025Q2

REPORT INFORMATION
  Report Type: Spontaneous
  Country: US (occurrence: US)
  Receive Date: 20250627
  Receipt Date: 20250627
  Transmission Date: 20250717
  Serious: Yes (Hospitalization, Other)
  Sender: ZYDUS PHARM
  Company Number: US-CADILA HEALTHCARE LIMITED-US-ZYDUS-125031

PATIENT

DRUGS (2)
  1. BETAMETHASONE [Suspect]
     Active Substance: BETAMETHASONE
     Indication: Analgesic therapy
     Route: 014
  2. BETAMETHASONE [Suspect]
     Active Substance: BETAMETHASONE
     Indication: Osteoarthritis

REACTIONS (1)
  - Syncope [Recovered/Resolved]
